FAERS Safety Report 9364937 (Version 2)
Quarter: 2013Q3

REPORT INFORMATION
  Report Type: Spontaneous
  Country: GB (occurrence: GB)
  Receive Date: 20130624
  Receipt Date: 20130712
  Transmission Date: 20140515
  Serious: Yes (Hospitalization, Other)
  Sender: FDA-Public Use
  Company Number: GB-VERTEX PHARMACEUTICALS INC-2013-007402

PATIENT
  Age: 44 Year
  Sex: Male

DRUGS (5)
  1. INCIVO [Suspect]
     Indication: HEPATITIS C
     Dates: start: 201204, end: 20121029
  2. RIBAVIRIN [Suspect]
     Indication: HEPATITIS C
     Dosage: DOSAGE FORM: TABLET
     Route: 048
     Dates: start: 201204
  3. RIBAVIRIN [Suspect]
     Dosage: DOSAGE FORM: TABLET
     Route: 048
  4. RIBAVIRIN [Suspect]
     Dosage: DOSAGE FORM: TABLET
     Route: 048
     Dates: start: 201207, end: 20121029
  5. PEG INTERFERON [Suspect]
     Indication: HEPATITIS C
     Dosage: DOSAGE FORM: INJECTION
     Route: 058
     Dates: start: 201204, end: 20121029

REACTIONS (8)
  - Hepatocellular carcinoma [Unknown]
  - International normalised ratio increased [Unknown]
  - Condition aggravated [Unknown]
  - Anaemia [Unknown]
  - Portal hypertensive gastropathy [Unknown]
  - Weight increased [Unknown]
  - Fluid retention [Unknown]
  - Pruritus [Unknown]
